FAERS Safety Report 4594023-X (Version None)
Quarter: 2005Q1

REPORT INFORMATION
  Report Type: 
  Country: None (occurrence: None)
  Receive Date: 20050218
  Receipt Date: 20050117
  Transmission Date: 20050727
  Serious: Yes (Death, Hospitalization)
  Sender: FDA-Public Use
  Company Number: 2005BI001115

PATIENT
  Age: 53 Year
  Sex: Female

DRUGS (14)
  1. NATALIZUMAB (NATALIZUMAB) [Suspect]
     Indication: RHEUMATOID ARTHRITIS
     Dosage: 300 MG; QM; IV
     Route: 042
     Dates: start: 20041101, end: 20041228
  2. METHOTREXATE [Concomitant]
  3. PREDNISONE [Concomitant]
  4. FOLIC ACID [Concomitant]
  5. LEVOTHYROXINE [Concomitant]
  6. PANTOPRAZOLE [Concomitant]
  7. AMIODARONE [Concomitant]
  8. ENALAPRIL MALEATE [Concomitant]
  9. CALCIUM CITRATE [Concomitant]
  10. VITAMIN D [Concomitant]
  11. ETORICOXIB [Concomitant]
  12. ALPRAZOLAM [Concomitant]
  13. ACETAMINOPHEN [Concomitant]
  14. ALENDRONATE SODIUM [Concomitant]

REACTIONS (16)
  - ARTERIAL HAEMORRHAGE [None]
  - BLOOD CREATININE INCREASED [None]
  - CALCULUS URETERIC [None]
  - CATHETER RELATED COMPLICATION [None]
  - ESCHERICHIA SEPSIS [None]
  - GENERAL PHYSICAL HEALTH DETERIORATION [None]
  - HAEMOPTYSIS [None]
  - HYDRONEPHROSIS [None]
  - HYPOTENSION [None]
  - OBSTRUCTIVE UROPATHY [None]
  - OLIGURIA [None]
  - PROCEDURAL COMPLICATION [None]
  - PULMONARY HAEMORRHAGE [None]
  - PYELONEPHRITIS [None]
  - RESPIRATORY FAILURE [None]
  - SEPTIC SHOCK [None]
